FAERS Safety Report 4288350-3 (Version None)
Quarter: 2004Q1

REPORT INFORMATION
  Report Type: 
  Country: None (occurrence: None)
  Receive Date: 20040209
  Receipt Date: 20030916
  Transmission Date: 20041129
  Serious: No
  Sender: FDA-Public Use
  Company Number: US-GLAXOSMITHKLINE-A0426135A

PATIENT
  Age: 69 Year
  Sex: Female

DRUGS (4)
  1. PAXIL [Suspect]
     Indication: NAUSEA
     Dosage: 30MG PER DAY
     Route: 048
  2. CARDIZEM CD [Concomitant]
  3. ASPIRIN [Concomitant]
  4. MULTI-VITAMIN [Concomitant]

REACTIONS (1)
  - DIZZINESS [None]
